FAERS Safety Report 10682204 (Version 1)
Quarter: 2014Q4

REPORT INFORMATION
  Report Type: Spontaneous
  Country: US (occurrence: None)
  Receive Date: 20141229
  Receipt Date: 20141229
  Transmission Date: 20150529
  Serious: Yes (Other)
  Sender: FDA-Public Use
  Company Number: None

PATIENT
  Age: 71 Year
  Sex: Female
  Weight: 81.65 kg

DRUGS (1)
  1. DORZOLAMIDE HCI [Suspect]
     Active Substance: DORZOLAMIDE HYDROCHLORIDE
     Indication: GLAUCOMA
     Dosage: 1 DROP TWICE DAILY INTO THE EYE
     Dates: start: 20141111, end: 20141215

REACTIONS (3)
  - Product quality issue [None]
  - Product substitution issue [None]
  - Eye irritation [None]

NARRATIVE: CASE EVENT DATE: 20141226
